FAERS Safety Report 15759600 (Version 2)
Quarter: 2024Q4

REPORT INFORMATION
  Report Type: Spontaneous
  Country: US (occurrence: US)
  Receive Date: 20181226
  Receipt Date: 20241220
  Transmission Date: 20250115
  Serious: Yes (Other)
  Sender: MERCK
  Company Number: US-009507513-1812USA009617

PATIENT

DRUGS (1)
  1. KEYTRUDA [Suspect]
     Active Substance: PEMBROLIZUMAB

REACTIONS (5)
  - Immune-mediated adverse reaction [Unknown]
  - Pancreatitis [Unknown]
  - Diarrhoea [Unknown]
  - Thyroiditis [Unknown]
  - Hypophysitis [Unknown]
